FAERS Safety Report 22346963 (Version 7)
Quarter: 2024Q1

REPORT INFORMATION
  Report Type: Report from Study
  Country: CO (occurrence: CO)
  Receive Date: 20230520
  Receipt Date: 20240124
  Transmission Date: 20240410
  Serious: Yes (Other)
  Sender: FDA-Public Use
  Company Number: CO-TAKEDA-2022TUS039594

PATIENT
  Age: 81 Year
  Sex: Female
  Weight: 44 kg

DRUGS (1)
  1. VEDOLIZUMAB [Suspect]
     Active Substance: VEDOLIZUMAB
     Indication: Crohn^s disease
     Dosage: 300 MILLIGRAM, Q4WEEKS
     Route: 042
     Dates: start: 20220325

REACTIONS (8)
  - Diverticulitis [Unknown]
  - Therapeutic reaction time decreased [Unknown]
  - Inappropriate schedule of product administration [Unknown]
  - Weight decreased [Unknown]
  - Discouragement [Unknown]
  - Depressive symptom [Unknown]
  - Insomnia [Unknown]
  - Mood altered [Unknown]

NARRATIVE: CASE EVENT DATE: 20220610
